FAERS Safety Report 7320048-7 (Version None)
Quarter: 2011Q1

REPORT INFORMATION
  Report Type: 
  Country: None (occurrence: None)
  Receive Date: 20110228
  Receipt Date: 20110216
  Transmission Date: 20110831
  Serious: Yes (Other)
  Sender: FDA-Public Use
  Company Number: US-AMGEN-USASP2011009279

PATIENT
  Age: 78 Year
  Sex: Female

DRUGS (1)
  1. PROLIA [Suspect]
     Indication: OSTEOPOROSIS POSTMENOPAUSAL
     Dosage: 60 MG, Q6MO
     Dates: start: 20101210

REACTIONS (14)
  - STOMATITIS [None]
  - TOOTH FRACTURE [None]
  - RASH [None]
  - MACULE [None]
  - WEIGHT DECREASED [None]
  - JAW DISORDER [None]
  - FUNGAL INFECTION [None]
  - ORAL MUCOSAL ERYTHEMA [None]
  - DRY SKIN [None]
  - RASH PRURITIC [None]
  - HYPERAESTHESIA [None]
  - BURNING SENSATION [None]
  - PAIN [None]
  - FEELING ABNORMAL [None]
